FAERS Safety Report 7152195-7 (Version None)
Quarter: 2010Q4

REPORT INFORMATION
  Report Type: 
  Country: None (occurrence: None)
  Receive Date: 20101213
  Receipt Date: 20101201
  Transmission Date: 20110411
  Serious: No
  Sender: FDA-Public Use
  Company Number: US-BIOGENIDEC-2010BI038120

PATIENT
  Sex: Female

DRUGS (1)
  1. TYSABRI [Suspect]
     Indication: MULTIPLE SCLEROSIS
     Route: 042
     Dates: start: 20070215

REACTIONS (8)
  - BALANCE DISORDER [None]
  - DRUG INEFFECTIVE [None]
  - EYELID OEDEMA [None]
  - FACE INJURY [None]
  - FALL [None]
  - HEAD INJURY [None]
  - LIMB INJURY [None]
  - PAIN [None]
